FAERS Safety Report 24374330 (Version 1)
Quarter: 2024Q3

REPORT INFORMATION
  Report Type: Spontaneous
  Country: US (occurrence: US)
  Receive Date: 20240927
  Receipt Date: 20240927
  Transmission Date: 20241017
  Serious: Yes (Other)
  Sender: PURDUE
  Company Number: US-PURDUE-USA-2024-0312207

PATIENT
  Age: 5 Year
  Sex: Female

DRUGS (1)
  1. DRONABINOL [Suspect]
     Active Substance: DRONABINOL
     Indication: Product used for unknown indication
     Dosage: UNK
     Route: 048

REACTIONS (10)
  - Overdose [Unknown]
  - Dizziness [Unknown]
  - Abdominal pain [Unknown]
  - Pallor [Unknown]
  - Lethargy [Unknown]
  - Abdominal pain upper [Unknown]
  - Gait disturbance [Unknown]
  - Somnolence [Unknown]
  - Oxygen saturation decreased [Unknown]
  - Drug screen positive [Unknown]
